FAERS Safety Report 10011143 (Version 1)
Quarter: 2014Q1

REPORT INFORMATION
  Report Type: Spontaneous
  Country: JP (occurrence: None)
  Receive Date: 20140311
  Receipt Date: 20140311
  Transmission Date: 20141002
  Serious: Yes (Other)
  Sender: FDA-Public Use
  Company Number: JP-DEXPHARM-20140057

PATIENT
  Age: 46 Year
  Sex: Male

DRUGS (1)
  1. CHLORHEXIDINE ACTIVE SUBSTANCES: CHLORHEXIDINE [Suspect]
     Indication: STERILISATION

REACTIONS (5)
  - Condition aggravated [None]
  - Drug ineffective [None]
  - Acanthamoeba keratitis [None]
  - Necrotising scleritis [None]
  - Corneal perforation [None]
